FAERS Safety Report 24736015 (Version 1)
Quarter: 2024Q4

REPORT INFORMATION
  Report Type: Spontaneous
  Country: US (occurrence: US)
  Receive Date: 20241216
  Receipt Date: 20241216
  Transmission Date: 20250115
  Serious: No
  Sender: AMGEN
  Company Number: US-AMGEN-USASP2024244424

PATIENT
  Age: 67 Year
  Sex: Female

DRUGS (14)
  1. OTEZLA [Suspect]
     Active Substance: APREMILAST
     Indication: Psoriasis
     Dosage: STAILEI, PACK PROLONGED TAPER (2 PACKS AFTERNATING DAYS)
     Route: 048
     Dates: start: 20240901
  2. METOPROLOL [Concomitant]
     Active Substance: METOPROLOL
  3. LOSARTAN [Concomitant]
     Active Substance: LOSARTAN
  4. ROPINIROLE [Concomitant]
     Active Substance: ROPINIROLE
  5. LIDOCAINE [Concomitant]
     Active Substance: LIDOCAINE
     Dosage: PATCH
  6. ONDANSETRON [Concomitant]
     Active Substance: ONDANSETRON
  7. SYNTHROID [Concomitant]
     Active Substance: LEVOTHYROXINE SODIUM
  8. ALBUTEROL [Concomitant]
     Active Substance: ALBUTEROL
  9. HYDROCHLOROTHIAZIDE [Concomitant]
     Active Substance: HYDROCHLOROTHIAZIDE
  10. GABAPENTIN [Concomitant]
     Active Substance: GABAPENTIN
  11. VOLTAREN [Concomitant]
     Active Substance: DICLOFENAC SODIUM
  12. FLUTICASONE [Concomitant]
     Active Substance: FLUTICASONE
  13. ELIQUIS [Concomitant]
     Active Substance: APIXABAN
  14. TIZANIDINE [Concomitant]
     Active Substance: TIZANIDINE

REACTIONS (1)
  - Abdominal pain upper [Unknown]

NARRATIVE: CASE EVENT DATE: 20240101
